FAERS Safety Report 6211572-9 (Version None)
Quarter: 2009Q2

REPORT INFORMATION
  Report Type: 
  Country: None (occurrence: None)
  Receive Date: 20090522
  Receipt Date: 20090407
  Transmission Date: 20091009
  Serious: No
  Sender: FDA-Public Use
  Company Number: 8044653

PATIENT
  Sex: Female
  Weight: 80.4 kg

DRUGS (6)
  1. CIMZIA [Suspect]
     Indication: CROHN'S DISEASE
     Dosage: 400 MG 1/2W SC
     Route: 058
     Dates: start: 20080920, end: 20081022
  2. CIMZIA [Suspect]
     Indication: CROHN'S DISEASE
     Dosage: 400 MG /M SC
     Route: 058
     Dates: start: 20080114
  3. AMBIEN CR [Concomitant]
  4. METOPROLOL SUCCINATE [Concomitant]
  5. CHANTIX [Concomitant]
  6. NORETHINDRONE AND ETHINYL ESTRADIOL [Concomitant]

REACTIONS (3)
  - FURUNCLE [None]
  - INAPPROPRIATE SCHEDULE OF DRUG ADMINISTRATION [None]
  - SKIN IRRITATION [None]
